FAERS Safety Report 23294908 (Version 2)
Quarter: 2023Q4

REPORT INFORMATION
  Report Type: Report from Study
  Country: US (occurrence: US)
  Receive Date: 20231213
  Receipt Date: 20231218
  Transmission Date: 20240110
  Serious: Yes (Other)
  Sender: FDA-Public Use
  Company Number: US-ABBVIE-5532119

PATIENT
  Age: 31 Year
  Sex: Female

DRUGS (1)
  1. SKYRIZI [Suspect]
     Active Substance: RISANKIZUMAB-RZAA
     Indication: Psoriasis
     Route: 058
     Dates: start: 20210702

REACTIONS (7)
  - Tenosynovitis stenosans [Unknown]
  - COVID-19 [Recovering/Resolving]
  - Radial nerve compression [Unknown]
  - Sensation of foreign body [Unknown]
  - Nasopharyngitis [Unknown]
  - Pain [Unknown]
  - Intersection syndrome [Unknown]

NARRATIVE: CASE EVENT DATE: 20231201
